FAERS Safety Report 5795583-3 (Version None)
Quarter: 2008Q2

REPORT INFORMATION
  Report Type: 
  Country: None (occurrence: None)
  Receive Date: 20080630
  Receipt Date: 20080620
  Transmission Date: 20081010
  Serious: Yes (Hospitalization, Other)
  Sender: FDA-Public Use
  Company Number: US-ABBOTT-08P-163-0459011-00

PATIENT
  Sex: Female
  Weight: 63.56 kg

DRUGS (5)
  1. DEPAKOTE [Suspect]
     Indication: CONVULSION
     Route: 048
     Dates: start: 20080410, end: 20080426
  2. DEPAKOTE [Suspect]
     Dosage: TITRATED OVER THREE WEEKS
     Route: 048
     Dates: start: 20080426, end: 20080612
  3. DEPAKOTE [Suspect]
     Route: 048
     Dates: start: 20080612, end: 20080618
  4. DEPAKOTE [Suspect]
     Dosage: ONLY TOOK 375MG A.M. THEN DISCOTNINUED DEPATOKE WHEN HOSPITALIZED THAT DAY
     Route: 048
     Dates: start: 20080618, end: 20080618
  5. LEVOTHYROXINE SODIUM [Concomitant]
     Indication: HYPOTHYROIDISM
     Dates: start: 19970101

REACTIONS (14)
  - ABASIA [None]
  - ACTIVITIES OF DAILY LIVING IMPAIRED [None]
  - ADVERSE DRUG REACTION [None]
  - AMMONIA INCREASED [None]
  - BLOOD PRESSURE INCREASED [None]
  - DROOLING [None]
  - FAECAL INCONTINENCE [None]
  - GRAND MAL CONVULSION [None]
  - INTESTINAL FUNCTIONAL DISORDER [None]
  - MONOPLEGIA [None]
  - PARESIS [None]
  - TREMOR [None]
  - URINARY INCONTINENCE [None]
  - WHEELCHAIR USER [None]
